FAERS Safety Report 7994411-5 (Version None)
Quarter: 2011Q4

REPORT INFORMATION
  Report Type: 
  Country: None (occurrence: None)
  Receive Date: 20111220
  Receipt Date: 20111212
  Transmission Date: 20120403
  Serious: Yes (Other)
  Sender: FDA-Public Use
  Company Number: ZA-AMGEN-ZAFSP2011066823

PATIENT
  Age: 51 Year
  Sex: Male

DRUGS (1)
  1. ENBREL [Suspect]
     Indication: PSORIATIC ARTHROPATHY
     Dosage: 25 MG, EVERY THIRD DAY
     Route: 058
     Dates: start: 20110519

REACTIONS (3)
  - SKIN EXFOLIATION [None]
  - PSORIATIC ARTHROPATHY [None]
  - PRURITUS [None]
